FAERS Safety Report 11269944 (Version 1)
Quarter: 2015Q3

REPORT INFORMATION
  Report Type: Spontaneous
  Country: US (occurrence: None)
  Receive Date: 20150713
  Receipt Date: 20150713
  Transmission Date: 20151125
  Serious: Yes (Hospitalization)
  Sender: FDA-Public Use
  Company Number: None

PATIENT
  Age: 61 Year
  Sex: Male
  Weight: 72.4 kg

DRUGS (1)
  1. ERBITUX [Suspect]
     Active Substance: CETUXIMAB
     Dosage: TOTAL DOSE ADMINISTERED 2828 MG
     Dates: end: 20140513

REACTIONS (2)
  - Radiation injury [None]
  - Mouth haemorrhage [None]

NARRATIVE: CASE EVENT DATE: 20150708
